FAERS Safety Report 17275126 (Version 2)
Quarter: 2020Q1

REPORT INFORMATION
  Report Type: Report from Study
  Country: ES (occurrence: ES)
  Receive Date: 20200116
  Receipt Date: 20200210
  Transmission Date: 20200409
  Serious: Yes (Hospitalization)
  Sender: FDA-Public Use
  Company Number: ES-TEVA-2020-ES-1167812

PATIENT
  Age: 66 Year
  Sex: Male

DRUGS (6)
  1. RISTFOR 50MG/1000 MG COMPRIMIDOS RECUBIERTOS CON PELICULA, 56 COMPRIMI [Concomitant]
     Indication: DIABETES MELLITUS
     Dosage: 2 MG; 50MG / 1000 MG; 56 TABLETS
     Route: 048
     Dates: start: 201805
  2. GLICLAZIDA (1657A) [Concomitant]
     Active Substance: GLICLAZIDE
     Indication: DIABETES MELLITUS
     Dosage: 30 MG
     Route: 048
     Dates: start: 201709
  3. HIDROCLOROTIAZIDA (1343A) [Interacting]
     Active Substance: HYDROCHLOROTHIAZIDE
     Indication: HYPERTENSION
     Dosage: 50 MG
     Route: 048
     Dates: start: 201804, end: 20190719
  4. ENALAPRIL MALEATO (2142MA) [Suspect]
     Active Substance: ENALAPRIL MALEATE
     Indication: ACCELERATED HYPERTENSION
     Dosage: 10 MG
     Dates: start: 201206, end: 201803
  5. ZEBINIX 800 MG COMPRIMIDOS , 30 COMPRIMIDOS [Interacting]
     Active Substance: ESLICARBAZEPINE ACETATE
     Indication: EPILEPSY
     Dosage: 800 MG; 30 TABLETS
     Route: 048
     Dates: start: 20190705, end: 20190719
  6. LEVETIRACETAM (1167A) [Concomitant]
     Active Substance: LEVETIRACETAM
     Indication: EPILEPSY
     Dosage: 3 GRAM
     Route: 048
     Dates: start: 20181207

REACTIONS (3)
  - Seizure [Recovered/Resolved]
  - Hyponatraemia [Recovered/Resolved]
  - Drug interaction [Unknown]

NARRATIVE: CASE EVENT DATE: 20190719
